FAERS Safety Report 18396324 (Version 10)
Quarter: 2021Q3

REPORT INFORMATION
  Report Type: Report from Study
  Country: CN (occurrence: CN)
  Receive Date: 20201019
  Receipt Date: 20210831
  Transmission Date: 20211014
  Serious: Yes (Hospitalization)
  Sender: FDA-Public Use
  Company Number: CN-ROCHE-2694428

PATIENT
  Age: 41 Year
  Sex: Male
  Weight: 82 kg

DRUGS (41)
  1. ATEZOLIZUMAB. [Suspect]
     Active Substance: ATEZOLIZUMAB
     Indication: NON-SMALL CELL LUNG CANCER
     Dosage: ON 11/SEP/2020, HE RECEIVED MOST RECENT DOSE 1200 MG OF INTRAVENOUS ATEZOLIZUMAB PRIOR TO THE ONSET
     Route: 041
     Dates: start: 20200911
  2. DEXAMETHASONE ACETATE [Concomitant]
     Active Substance: DEXAMETHASONE ACETATE
     Route: 048
     Dates: start: 20200910, end: 20200911
  3. DEXAMETHASONE ACETATE [Concomitant]
     Active Substance: DEXAMETHASONE ACETATE
     Route: 048
     Dates: start: 20200912, end: 20200912
  4. LEUCOGEN [Concomitant]
     Active Substance: LEUCOGEN
     Dates: start: 20201210
  5. PEMETREXED. [Suspect]
     Active Substance: PEMETREXED
     Indication: NON-SMALL CELL LUNG CANCER
     Dosage: ON 11/SEP/2020, HE RECEIVED THE LAST DOSE OF INTRAVENOUS PEMETREXED 1000 MG PRIOR TO THE ONSET OF SE
     Route: 042
     Dates: start: 20200911
  6. TROPISETRON HYDROCHLORIDE [Concomitant]
     Active Substance: TROPISETRON HYDROCHLORIDE
     Dates: start: 20201103, end: 20201103
  7. LANSOPRAZOLE. [Concomitant]
     Active Substance: LANSOPRAZOLE
     Dates: start: 20201013, end: 20201013
  8. BETAMETHASONE. [Concomitant]
     Active Substance: BETAMETHASONE
     Route: 042
     Dates: start: 20200911, end: 20200911
  9. DEXAMETHASONE ACETATE [Concomitant]
     Active Substance: DEXAMETHASONE ACETATE
     Route: 048
     Dates: start: 20201014, end: 20201015
  10. DEXAMETHASONE ACETATE [Concomitant]
     Active Substance: DEXAMETHASONE ACETATE
     Route: 048
     Dates: start: 20201016, end: 20201016
  11. DEXAMETHASONE ACETATE [Concomitant]
     Active Substance: DEXAMETHASONE ACETATE
     Route: 048
     Dates: start: 20201208, end: 20201208
  12. DEXAMETHASONE ACETATE [Concomitant]
     Active Substance: DEXAMETHASONE ACETATE
     Route: 048
     Dates: start: 20210101, end: 20210102
  13. OMEPRAZOLE MAGNESIUM. [Concomitant]
     Active Substance: OMEPRAZOLE MAGNESIUM
     Indication: PROPHYLAXIS
     Dates: start: 20200911, end: 20200914
  14. CARBOPLATIN. [Suspect]
     Active Substance: CARBOPLATIN
     Indication: NON-SMALL CELL LUNG CANCER
     Dosage: ON 11/SEP/2020, HE RECEIVED THE LAST DOSE OF INTRAVENOUS CARBOPLATIN 900 MG PRIOR TO THE ONSET OF SE
     Route: 042
     Dates: start: 20200911
  15. LANSOPRAZOLE. [Concomitant]
     Active Substance: LANSOPRAZOLE
     Indication: PROPHYLAXIS
     Dates: start: 20200911, end: 20200911
  16. MAGNESIUM ISOGLYCYRRHIZINATE [Concomitant]
     Active Substance: MAGNESIUM ISOGLYCYRRHIZINATE
     Dates: start: 20201103, end: 20201103
  17. DEXAMETHASONE ACETATE [Concomitant]
     Active Substance: DEXAMETHASONE ACETATE
     Route: 048
     Dates: start: 20201209, end: 20201210
  18. LEUCOGEN [Concomitant]
     Active Substance: LEUCOGEN
     Dates: start: 20201210
  19. DIAMMONIUM GLYCYRRHIZINATE [Concomitant]
     Active Substance: HERBALS\DIAMMONIUM GLYCYRRHIZINATE
     Indication: PROPHYLAXIS
     Dates: start: 20201104, end: 20201124
  20. BEVACIZUMAB. [Suspect]
     Active Substance: BEVACIZUMAB
     Indication: NON-SMALL CELL LUNG CANCER
     Dosage: ON 11/SEP/2020, HE RECEIVED THE LAST DOSE OF INTRAVENOUS BEVACIZUMAB 1230 MG PRIOR TO THE ONSET OF S
     Route: 042
     Dates: start: 20200911
  21. BETAMETHASONE. [Concomitant]
     Active Substance: BETAMETHASONE
     Route: 042
     Dates: start: 20201014, end: 20201014
  22. MAGNESIUM ISOGLYCYRRHIZINATE [Concomitant]
     Active Substance: MAGNESIUM ISOGLYCYRRHIZINATE
     Dates: start: 20201014, end: 20201014
  23. DEXAMETHASONE ACETATE [Concomitant]
     Active Substance: DEXAMETHASONE ACETATE
     Dates: start: 20201104, end: 20201127
  24. TROPISETRON HYDROCHLORIDE [Concomitant]
     Active Substance: TROPISETRON HYDROCHLORIDE
     Indication: PROPHYLAXIS
     Dates: start: 20200911, end: 20200911
  25. LANSOPRAZOLE. [Concomitant]
     Active Substance: LANSOPRAZOLE
     Dates: start: 20201103, end: 20201103
  26. DIAMMONIUM GLYCYRRHIZINATE [Concomitant]
     Active Substance: HERBALS\DIAMMONIUM GLYCYRRHIZINATE
     Dates: start: 20210101
  27. BETAMETHASONE. [Concomitant]
     Active Substance: BETAMETHASONE
     Route: 042
     Dates: start: 20201103, end: 20201103
  28. DEXAMETHASONE ACETATE [Concomitant]
     Active Substance: DEXAMETHASONE ACETATE
     Route: 048
     Dates: start: 20201103, end: 20201104
  29. DEXAMETHASONE ACETATE [Concomitant]
     Active Substance: DEXAMETHASONE ACETATE
     Route: 048
     Dates: start: 20201230, end: 20201230
  30. DEXAMETHASONE ACETATE [Concomitant]
     Active Substance: DEXAMETHASONE ACETATE
     Route: 048
     Dates: start: 20210103, end: 20210103
  31. PEGYLATED RECOMBINANT HUMAN GRANULOCYTE COLONY STIMULATING FACTOR [Concomitant]
     Dates: start: 20201102, end: 20201102
  32. FOLIC ACID. [Concomitant]
     Active Substance: FOLIC ACID
     Indication: PROPHYLAXIS
     Dates: start: 20200904
  33. TROPISETRON HYDROCHLORIDE [Concomitant]
     Active Substance: TROPISETRON HYDROCHLORIDE
     Dates: start: 20201014, end: 20201014
  34. MAGNESIUM ISOGLYCYRRHIZINATE [Concomitant]
     Active Substance: MAGNESIUM ISOGLYCYRRHIZINATE
     Dates: start: 20210122, end: 20210122
  35. DEXAMETHASONE ACETATE [Concomitant]
     Active Substance: DEXAMETHASONE ACETATE
     Route: 048
     Dates: start: 20201013, end: 20201013
  36. LEUCOGEN [Concomitant]
     Active Substance: LEUCOGEN
     Indication: PROPHYLAXIS
     Dates: start: 20200911, end: 20200926
  37. PEGYLATED RECOMBINANT HUMAN GRANULOCYTE COLONY STIMULATING FACTOR [Concomitant]
     Dates: start: 20201103, end: 20201103
  38. LANSOPRAZOLE. [Concomitant]
     Active Substance: LANSOPRAZOLE
     Dates: start: 20201014, end: 20201014
  39. DEXAMETHASONE ACETATE [Concomitant]
     Active Substance: DEXAMETHASONE ACETATE
     Route: 048
     Dates: start: 20201102, end: 20201102
  40. ONDANSETRON HYDROCHLORIDE. [Concomitant]
     Active Substance: ONDANSETRON HYDROCHLORIDE
     Indication: PROPHYLAXIS
     Dates: start: 20200911, end: 20200915
  41. LORATADINE. [Concomitant]
     Active Substance: LORATADINE
     Indication: RASH
     Dates: start: 20201015, end: 20201020

REACTIONS (1)
  - Hepatic function abnormal [Recovered/Resolved]

NARRATIVE: CASE EVENT DATE: 20200923
